FAERS Safety Report 5852770-3 (Version None)
Quarter: 2008Q3

REPORT INFORMATION
  Report Type: 
  Country: None (occurrence: None)
  Receive Date: 20080821
  Receipt Date: 20080812
  Transmission Date: 20090109
  Serious: No
  Sender: FDA-Public Use
  Company Number: GB-ASTRAZENECA-2008GB00996

PATIENT
  Age: 19433 Day
  Sex: Female

DRUGS (3)
  1. ANASTROZOLE [Suspect]
     Indication: BREAST CANCER
     Route: 048
     Dates: start: 20071024
  2. SUMATRIPTAN SUCCINATE [Concomitant]
     Indication: MIGRAINE
     Route: 048
     Dates: start: 20080718
  3. AMITRIPTYLINE HCL [Concomitant]
     Indication: MIGRAINE PROPHYLAXIS
     Route: 048
     Dates: start: 20040709

REACTIONS (2)
  - OSTEOPENIA [None]
  - TOOTH LOSS [None]
